FAERS Safety Report 9771134 (Version 1)
Quarter: 2013Q4

REPORT INFORMATION
  Report Type: Spontaneous
  Country: US (occurrence: US)
  Receive Date: 20131218
  Receipt Date: 20131218
  Transmission Date: 20140711
  Serious: Yes (Hospitalization, Other)
  Sender: FDA-Public Use
  Company Number: US-B.I. PHARMACEUTICALS,INC./RIDGEFIELD-2013-BI-41618BP

PATIENT
  Age: 91 Year
  Sex: Male
  Weight: 77 kg

DRUGS (2)
  1. PRADAXA [Suspect]
     Indication: CARDIAC VALVE DISEASE
     Dosage: 300 MG
     Route: 048
     Dates: start: 2010
  2. SEROQUEL [Concomitant]
     Dosage: 25 MG
     Route: 048

REACTIONS (7)
  - Psychotic disorder [Not Recovered/Not Resolved]
  - Dementia [Not Recovered/Not Resolved]
  - Dementia [Not Recovered/Not Resolved]
  - Urinary tract infection [Recovered/Resolved]
  - Contusion [Recovered/Resolved]
  - Contusion [Recovered/Resolved]
  - Off label use [Unknown]
